FAERS Safety Report 6170841-1 (Version None)
Quarter: 2009Q2

REPORT INFORMATION
  Report Type: 
  Country: None (occurrence: None)
  Receive Date: 20090427
  Receipt Date: 20090414
  Transmission Date: 20091009
  Serious: Yes (Other)
  Sender: FDA-Public Use
  Company Number: DSA_33507_2009

PATIENT
  Sex: Female
  Weight: 66.2252 kg

DRUGS (14)
  1. XENAZINE [Suspect]
     Indication: TREMOR
     Dosage: (25 MG TID), (DOSE DECREASED)
     Dates: start: 20090301, end: 20090319
  2. XENAZINE [Suspect]
     Indication: TREMOR
     Dosage: (25 MG TID), (DOSE DECREASED)
     Dates: start: 20090320, end: 20090320
  3. SYMBICORT [Concomitant]
  4. SYNTHROID [Concomitant]
  5. NEXIUM [Concomitant]
  6. ATENOLOL [Concomitant]
  7. CITALOPRAM HYDROBROMIDE [Concomitant]
  8. HYAMAX SR [Concomitant]
  9. BUPROPION HCL [Concomitant]
  10. DICLOFENAC SODIUM [Concomitant]
  11. ALBUTEROL [Concomitant]
  12. FLUTICASONE [Concomitant]
  13. M.V.I. [Concomitant]
  14. B-COMPLEX /01523901/ [Concomitant]

REACTIONS (9)
  - ANXIETY [None]
  - APATHY [None]
  - CRYING [None]
  - EATING DISORDER [None]
  - FLUID INTAKE REDUCED [None]
  - MENTAL DISORDER [None]
  - NERVOUSNESS [None]
  - PANIC ATTACK [None]
  - WEIGHT DECREASED [None]
